FAERS Safety Report 20524117 (Version 1)
Quarter: 2022Q1

REPORT INFORMATION
  Report Type: Spontaneous
  Country: US (occurrence: US)
  Receive Date: 20220228
  Receipt Date: 20220228
  Transmission Date: 20220423
  Serious: No
  Sender: FDA-Public Use
  Company Number: US-ORG100014127-2021001419

PATIENT
  Age: 34 Year
  Sex: Female

DRUGS (5)
  1. METYRAPONE [Suspect]
     Active Substance: METYRAPONE
     Dosage: START DOSE OF 250 MG BID
     Route: 048
  2. METYRAPONE [Suspect]
     Active Substance: METYRAPONE
     Dosage: INCREASED TO 1000 MG THREE TIMES DAILY BY THE TIME OF DELIVERY
     Route: 048
  3. METYRAPONE [Suspect]
     Active Substance: METYRAPONE
     Dosage: 500 MG TID AFTER PREGNANCY
     Route: 048
  4. LABETALOL [Concomitant]
     Active Substance: LABETALOL\LABETALOL HYDROCHLORIDE
     Dosage: 400 MG BID
  5. NIFEDIPINE [Concomitant]
     Active Substance: NIFEDIPINE
     Route: 065

REACTIONS (2)
  - Exposure during pregnancy [Recovered/Resolved]
  - Off label use [Recovered/Resolved]
